FAERS Safety Report 5155988-0 (Version None)
Quarter: 2006Q4

REPORT INFORMATION
  Report Type: 
  Country: None (occurrence: None)
  Receive Date: 20061122
  Receipt Date: 20060628
  Transmission Date: 20070319
  Serious: Yes (Other)
  Sender: FDA-Public Use
  Company Number: 2006GB01114

PATIENT
  Age: 56 Year
  Sex: Female
  Weight: 64 kg

DRUGS (3)
  1. PLENDIL [Suspect]
     Indication: HYPERTENSION
     Route: 048
     Dates: start: 20060419
  2. PLENDIL [Interacting]
     Route: 048
     Dates: start: 20060607
  3. ALCOHOL [Interacting]
     Dosage: THREE GLASSES OF WINE
     Route: 048

REACTIONS (5)
  - ALCOHOL INTERACTION [None]
  - FALL [None]
  - FATIGUE [None]
  - SPINAL COMPRESSION FRACTURE [None]
  - SYNCOPE [None]
